FAERS Safety Report 20116126 (Version 1)
Quarter: 2021Q4

REPORT INFORMATION
  Report Type: Spontaneous
  Country: IT (occurrence: IT)
  Receive Date: 20211126
  Receipt Date: 20211126
  Transmission Date: 20220304
  Serious: Yes (Hospitalization, Other)
  Sender: FDA-Public Use
  Company Number: IT-ABBVIE-21K-083-4176742-00

PATIENT
  Age: 51 Year
  Sex: Male

DRUGS (2)
  1. VALPROIC ACID [Suspect]
     Active Substance: VALPROIC ACID
     Indication: Generalised tonic-clonic seizure
     Route: 048
     Dates: start: 20191109, end: 20200504
  2. CARBAMAZEPINE [Suspect]
     Active Substance: CARBAMAZEPINE
     Indication: Epilepsy
     Dosage: TOTAL
     Route: 048
     Dates: start: 20200504, end: 20200504

REACTIONS (5)
  - Craniocerebral injury [Unknown]
  - Syncope [Unknown]
  - Periorbital oedema [Unknown]
  - Haematoma [Unknown]
  - Drug interaction [Unknown]

NARRATIVE: CASE EVENT DATE: 20200504
